FAERS Safety Report 5669406-7 (Version None)
Quarter: 2008Q1

REPORT INFORMATION
  Report Type: 
  Country: None (occurrence: None)
  Receive Date: 20080317
  Receipt Date: 20080228
  Transmission Date: 20080703
  Serious: Yes (Congenital Anomaly)
  Sender: FDA-Public Use
  Company Number: A0685054A

PATIENT
  Sex: Male

DRUGS (4)
  1. PAXIL [Suspect]
     Indication: ANXIETY
     Dosage: 20MG TWICE PER DAY
     Dates: start: 20051101, end: 20060101
  2. TRAZODONE HCL [Concomitant]
     Dates: start: 20051101, end: 20060201
  3. VITAMIN TAB [Concomitant]
     Dates: start: 20060101
  4. FEOSOL [Concomitant]
     Dates: start: 20060101

REACTIONS (7)
  - APNOEA [None]
  - ATRIAL SEPTAL DEFECT [None]
  - BREECH PRESENTATION [None]
  - DRUG EXPOSURE DURING PREGNANCY [None]
  - GASTROOESOPHAGEAL REFLUX DISEASE [None]
  - PATENT DUCTUS ARTERIOSUS [None]
  - PREMATURE BABY [None]
